FAERS Safety Report 6688005-1 (Version None)
Quarter: 2010Q2

REPORT INFORMATION
  Report Type: 
  Country: None (occurrence: None)
  Receive Date: 20100420
  Receipt Date: 20100414
  Transmission Date: 20101027
  Serious: Yes (Hospitalization, Other)
  Sender: FDA-Public Use
  Company Number: US-ASTRAZENECA-2010SE16485

PATIENT
  Age: 72 Year
  Sex: Female
  Weight: 81.6 kg

DRUGS (6)
  1. TOPROL-XL [Suspect]
     Route: 048
     Dates: start: 20060101
  2. LIPITOR [Concomitant]
  3. ALTACE [Concomitant]
  4. ZOLOFT [Concomitant]
  5. ACIPHEX [Concomitant]
  6. HYDROCHLOROTHIAZIDE [Concomitant]

REACTIONS (3)
  - ANGINA PECTORIS [None]
  - CARDIAC FAILURE [None]
  - SEPSIS [None]
